FAERS Safety Report 6044135-9 (Version None)
Quarter: 2009Q1

REPORT INFORMATION
  Report Type: 
  Country: None (occurrence: None)
  Receive Date: 20090120
  Receipt Date: 20090115
  Transmission Date: 20090719
  Serious: Yes (Death)
  Sender: FDA-Public Use
  Company Number: US-BRISTOL-MYERS SQUIBB COMPANY-14473037

PATIENT
  Age: 36 Year
  Sex: Female

DRUGS (4)
  1. TRAZODONE HCL [Suspect]
  2. OXYCODONE [Suspect]
  3. ETHANOL [Suspect]
  4. CYCLOBENZAPRINE [Suspect]

REACTIONS (3)
  - CARDIAC ARREST [None]
  - COMPLETED SUICIDE [None]
  - RESPIRATORY ARREST [None]
